FAERS Safety Report 15953024 (Version 2)
Quarter: 2019Q3

REPORT INFORMATION
  Report Type: Spontaneous
  Country: US (occurrence: US)
  Receive Date: 20190211
  Receipt Date: 20190905
  Transmission Date: 20191004
  Serious: No
  Sender: FDA-Public Use
  Company Number: US-VERTEX PHARMACEUTICALS-2019-001143

PATIENT
  Age: 37 Year
  Sex: Male

DRUGS (9)
  1. CREON [Concomitant]
     Active Substance: PANCRELIPASE AMYLASE\PANCRELIPASE LIPASE\PANCRELIPASE PROTEASE
  2. TOBI [Concomitant]
     Active Substance: TOBRAMYCIN
  3. MONTELUKAST [Concomitant]
     Active Substance: MONTELUKAST SODIUM
  4. DOXYCYCLINE HYCLATE. [Concomitant]
     Active Substance: DOXYCYCLINE HYCLATE
  5. SMZ-TMP [Concomitant]
     Active Substance: SULFAMETHOXAZOLE\TRIMETHOPRIM
  6. SYMDEKO [Suspect]
     Active Substance: IVACAFTOR\TEZACAFTOR
     Indication: CYSTIC FIBROSIS
     Dosage: 100MG TEZACAFTOR/150MG IVACAFTOR AM; 150MG IVACAFTOR PM
     Route: 048
     Dates: start: 20180803, end: 20190829
  7. PROAIR HFA [Concomitant]
     Active Substance: ALBUTEROL SULFATE
  8. ALBUTEROL                          /00139501/ [Concomitant]
     Active Substance: ALBUTEROL
  9. PULMOZYME [Concomitant]
     Active Substance: DORNASE ALFA

REACTIONS (1)
  - Influenza [Recovered/Resolved]

NARRATIVE: CASE EVENT DATE: 20190126
